FAERS Safety Report 5420872-1 (Version None)
Quarter: 2007Q3

REPORT INFORMATION
  Report Type: 
  Country: None (occurrence: None)
  Receive Date: 20070821
  Receipt Date: 20070816
  Transmission Date: 20080115
  Serious: Yes (Death)
  Sender: FDA-Public Use
  Company Number: HQWYE576016AUG07

PATIENT
  Sex: Male

DRUGS (3)
  1. RAPAMUNE [Suspect]
     Indication: PROPHYLAXIS AGAINST TRANSPLANT REJECTION
     Route: 048
     Dates: start: 20070227
  2. RAPAMUNE [Suspect]
     Indication: PROPHYLAXIS
  3. RAPAMUNE [Suspect]
     Indication: HEPATIC NEOPLASM MALIGNANT RECURRENT

REACTIONS (1)
  - DEATH [None]
